FAERS Safety Report 4322986-6 (Version None)
Quarter: 2004Q1

REPORT INFORMATION
  Report Type: 
  Country: None (occurrence: None)
  Receive Date: 20040325
  Receipt Date: 20040312
  Transmission Date: 20041129
  Serious: Yes (Hospitalization)
  Sender: FDA-Public Use
  Company Number: US-BRISTOL-MYERS SQUIBB COMPANY-12531166

PATIENT
  Age: 55 Year
  Sex: Male

DRUGS (6)
  1. PACLITAXEL [Suspect]
     Indication: OESOPHAGEAL CARCINOMA
     Route: 042
     Dates: start: 20040102, end: 20040102
  2. CARBOPLATIN [Suspect]
     Indication: OESOPHAGEAL CARCINOMA
     Route: 042
     Dates: start: 20040102, end: 20040102
  3. ADRUCIL [Suspect]
     Indication: OESOPHAGEAL CARCINOMA
     Dosage: 24 HOUR CONTINUOUS INFUSION
     Route: 042
     Dates: start: 20040106, end: 20040106
  4. RADIATION THERAPY [Suspect]
     Indication: OESOPHAGEAL CARCINOMA
  5. PROCHLORPERAZINE [Concomitant]
     Indication: NAUSEA
     Dosage: EVERY 4 TO 6 HOURS
     Dates: start: 20031211
  6. MAGIC MOUTHWASH [Concomitant]
     Indication: STOMATITIS
     Dates: start: 20031217

REACTIONS (5)
  - ANAEMIA [None]
  - DEHYDRATION [None]
  - NAUSEA [None]
  - OESOPHAGITIS [None]
  - VOMITING [None]
